FAERS Safety Report 16808489 (Version 1)
Quarter: 2019Q3

REPORT INFORMATION
  Report Type: Spontaneous
  Country: US (occurrence: US)
  Receive Date: 20190916
  Receipt Date: 20190916
  Transmission Date: 20191005
  Serious: No
  Sender: FDA-Public Use
  Company Number: US-JNJFOC-20190910472

PATIENT
  Sex: Male

DRUGS (5)
  1. XARELTO [Concomitant]
     Active Substance: RIVAROXABAN
     Indication: PULMONARY EMBOLISM
     Route: 048
     Dates: start: 201403, end: 201410
  2. TYLENOL [Suspect]
     Active Substance: ACETAMINOPHEN
     Indication: MIGRAINE
  3. TYLENOL [Suspect]
     Active Substance: ACETAMINOPHEN
     Indication: HEADACHE
  4. XARELTO [Concomitant]
     Active Substance: RIVAROXABAN
     Route: 048
     Dates: start: 201503
  5. TYLENOL [Suspect]
     Active Substance: ACETAMINOPHEN
     Indication: TENSION HEADACHE
     Dosage: %FREQUENCY%
     Route: 048

REACTIONS (1)
  - Therapeutic product effect incomplete [Unknown]
